FAERS Safety Report 6536673-7 (Version None)
Quarter: 2010Q1

REPORT INFORMATION
  Report Type: 
  Country: None (occurrence: None)
  Receive Date: 20100106
  Receipt Date: 20091228
  Transmission Date: 20100710
  Serious: Yes (Death)
  Sender: FDA-Public Use
  Company Number: 2009EU004947

PATIENT
  Age: 57 Year
  Sex: Female

DRUGS (4)
  1. PROGRAF [Suspect]
     Dosage: 5 MG/ML, IV NOS
     Route: 042
     Dates: start: 20090410
  2. NEORAL [Suspect]
     Dates: end: 20090410
  3. CERTICAN [Suspect]
     Dates: start: 20090424
  4. REMICADE [Suspect]
     Dosage: 100 MG, IV NOS
     Route: 042
     Dates: start: 20090410, end: 20090424

REACTIONS (3)
  - CEREBRAL ASPERGILLOSIS [None]
  - SUBARACHNOID HAEMORRHAGE [None]
  - THROMBOCYTOPENIA [None]
